FAERS Safety Report 6251914-1 (Version None)
Quarter: 2009Q2

REPORT INFORMATION
  Report Type: 
  Country: None (occurrence: None)
  Receive Date: 20090630
  Receipt Date: 20090618
  Transmission Date: 20091009
  Serious: Yes (Other)
  Sender: FDA-Public Use
  Company Number: FR-ELI_LILLY_AND_COMPANY-FR200906004304

PATIENT
  Sex: Male

DRUGS (2)
  1. PROZAC [Suspect]
     Indication: DEPRESSION
     Dosage: 20 MG, DAILY (1/D)
     Route: 048
     Dates: start: 20080601
  2. PRAZEPAM [Concomitant]
     Indication: DEPRESSION
     Route: 048
     Dates: start: 20080601

REACTIONS (2)
  - DEPERSONALISATION [None]
  - THEFT [None]
